FAERS Safety Report 20637822 (Version 1)
Quarter: 2022Q1

REPORT INFORMATION
  Report Type: Spontaneous
  Country: GB (occurrence: None)
  Receive Date: 20220325
  Receipt Date: 20220325
  Transmission Date: 20220423
  Serious: Yes (Other)
  Sender: FDA-Public Use
  Company Number: 2022A119482

PATIENT
  Age: 77 Year
  Sex: Male
  Weight: 91 kg

DRUGS (18)
  1. DAPAGLIFLOZIN [Suspect]
     Active Substance: DAPAGLIFLOZIN
     Dosage: TAKE ONE DAILY
     Route: 065
     Dates: start: 20211022, end: 20220309
  2. DAPAGLIFLOZIN [Suspect]
     Active Substance: DAPAGLIFLOZIN
     Dosage: 5MG TABLETS5.0MG UNKNOWN
     Route: 065
     Dates: start: 20220316
  3. ASPIRIN [Concomitant]
     Active Substance: ASPIRIN
     Dosage: TAKE ONE DAILY - LIFELONG
     Dates: start: 20210721
  4. CANDESARTAN [Concomitant]
     Active Substance: CANDESARTAN
     Dosage: TAKE ONE ONCE A DAY
     Dates: start: 20210628
  5. DIAZEPAM [Concomitant]
     Active Substance: DIAZEPAM
     Dosage: TAKE ONE TABLET ONE HOUR BEFORE YOUR PROCEDURE ...
     Dates: start: 20220222, end: 20220223
  6. EZETIMIBE [Concomitant]
     Active Substance: EZETIMIBE
     Dosage: TAKE ONE DAILY
     Dates: start: 20210721
  7. FERROUS SULFATE [Concomitant]
     Active Substance: FERROUS SULFATE
     Dosage: TAKE ONE 3 TIMES/DAY
     Dates: start: 20220201, end: 20220202
  8. FINASTERIDE [Concomitant]
     Active Substance: FINASTERIDE
     Dosage: TAKE ONE DAILY
     Dates: start: 20211217
  9. FLUTICASONE FUROATE [Concomitant]
     Active Substance: FLUTICASONE FUROATE
     Dosage: USE ONCE DAILY
     Dates: start: 20200928
  10. GLICLAZIDE [Concomitant]
     Active Substance: GLICLAZIDE
     Dosage: TAKE TWO TABLETS TWICE A DAY
     Dates: start: 20210721, end: 20220309
  11. NITROGLYCERIN [Concomitant]
     Active Substance: NITROGLYCERIN
     Indication: Angina pectoris
     Dosage: USE 1-2 SPRAYS WHEN NEEDED FOR ANGINA PAIN AS D...
     Dates: start: 20210721
  12. INSULIN HUMAN [Concomitant]
     Active Substance: INSULIN HUMAN
     Dosage: USE AS DIRECTED
     Dates: start: 20220309
  13. OMEPRAZOLE [Concomitant]
     Active Substance: OMEPRAZOLE
     Dosage: TAKE ONE DAILY
     Dates: start: 20210721
  14. ROSUVASTATIN [Concomitant]
     Active Substance: ROSUVASTATIN
     Dosage: TAKE ONE DAILY
     Dates: start: 20210721
  15. ALBUTEROL [Concomitant]
     Active Substance: ALBUTEROL
     Dosage: INHALE 2 DOSES AS NEEDED
     Dates: start: 20210721
  16. METFORMIN HYDROCHLORIDE [Concomitant]
     Active Substance: METFORMIN HYDROCHLORIDE
     Dosage: TAKE 1 TABLET TWICE A DAY
     Dates: start: 20210721
  17. TAMSULOSIN HYDROCHLORIDE [Concomitant]
     Active Substance: TAMSULOSIN HYDROCHLORIDE
     Dosage: TAKE ONE EVERY MORNING
     Dates: start: 20211217
  18. TICAGRELOR [Concomitant]
     Active Substance: TICAGRELOR
     Dosage: TAKE ONE TWICE DAILY - UNTIL JULY 2022
     Dates: start: 20210721

REACTIONS (1)
  - Haematuria [Recovered/Resolved]

NARRATIVE: CASE EVENT DATE: 20220316
